FAERS Safety Report 6407086-3 (Version None)
Quarter: 2009Q4

REPORT INFORMATION
  Report Type: 
  Country: None (occurrence: None)
  Receive Date: 20091020
  Receipt Date: 20091016
  Transmission Date: 20100525
  Serious: Yes (Death)
  Sender: FDA-Public Use
  Company Number: RU-ROCHE-662863

PATIENT
  Sex: Female
  Weight: 75 kg

DRUGS (3)
  1. CAPECITABINE [Suspect]
     Dosage: FREQUENCY: 1750, LAST DOSE PRIOR TO SAE: 09 OCT 2009
     Route: 048
     Dates: start: 20090630
  2. TRASTUZUMAB [Suspect]
     Dosage: FORM: INFUSION SOLUTION, FREQUENCY: 6, LAST DOSE PRIOR TO SAE: 25 SEP 2009
     Route: 042
     Dates: start: 20090630
  3. BEVACIZUMAB [Suspect]
     Dosage: FORM: INFUSION SOLUTION, FREQUENCY: 15, LAST DOSE PRIOR TO SAE: 25 SEP 2009
     Route: 042
     Dates: start: 20090630

REACTIONS (1)
  - RESPIRATORY FAILURE [None]
